FAERS Safety Report 24110086 (Version 1)
Quarter: 2024Q3

REPORT INFORMATION
  Report Type: Spontaneous
  Country: FR (occurrence: FR)
  Receive Date: 20240718
  Receipt Date: 20240718
  Transmission Date: 20241017
  Serious: Yes (Life-Threatening)
  Sender: FRESENIUS KABI
  Company Number: None

PATIENT
  Sex: Male

DRUGS (3)
  1. ROPIVACAINE [Suspect]
     Active Substance: ROPIVACAINE
     Indication: Epidural anaesthesia
     Route: 008
     Dates: start: 20240520, end: 20240521
  2. MIDAZOLAM [Suspect]
     Active Substance: MIDAZOLAM
     Indication: Epidural anaesthesia
     Route: 064
     Dates: start: 20240521, end: 20240521
  3. SUFENTA [Suspect]
     Active Substance: SUFENTANIL CITRATE
     Indication: Epidural anaesthesia
     Route: 064
     Dates: start: 20240520, end: 20240521

REACTIONS (1)
  - Neonatal respiratory distress [Recovered/Resolved]

NARRATIVE: CASE EVENT DATE: 20240521
